FAERS Safety Report 9855633 (Version 1)
Quarter: 2014Q1

REPORT INFORMATION
  Report Type: Report from Study
  Country: CO (occurrence: CO)
  Receive Date: 20140130
  Receipt Date: 20140130
  Transmission Date: 20141002
  Serious: Yes (Death)
  Sender: FDA-Public Use
  Company Number: PHHY2014CO009813

PATIENT
  Age: 40 Year
  Sex: Male

DRUGS (1)
  1. SANDOSTATIN LAR [Suspect]
     Dosage: 30 MG, EVERY ONE MONTH FROR THREE MONTHS
     Route: 030
     Dates: start: 20140101

REACTIONS (1)
  - Death [Fatal]
